FAERS Safety Report 9236277 (Version 1)
Quarter: 2013Q2

REPORT INFORMATION
  Report Type: Report from Study
  Country: BR (occurrence: BR)
  Receive Date: 20130417
  Receipt Date: 20130417
  Transmission Date: 20140414
  Serious: Yes (Other)
  Sender: FDA-Public Use
  Company Number: BR-US-EMD SERONO, INC.-7204369

PATIENT
  Sex: Female

DRUGS (6)
  1. REBIF [Suspect]
     Indication: MULTIPLE SCLEROSIS
     Dates: start: 20120101
  2. PARACETAMOL [Suspect]
     Indication: CHILLS
  3. PARACETAMOL [Suspect]
     Indication: PAIN
  4. FLUOXETINE [Concomitant]
     Indication: PRODUCT USED FOR UNKNOWN INDICATION
  5. SINVASTATINE [Concomitant]
     Indication: PRODUCT USED FOR UNKNOWN INDICATION
  6. LINSEED OIL [Concomitant]
     Indication: PRODUCT USED FOR UNKNOWN INDICATION

REACTIONS (4)
  - Liver injury [Unknown]
  - Vitamin D decreased [Unknown]
  - Pain [Unknown]
  - Chills [Unknown]
